FAERS Safety Report 7274872-X (Version None)
Quarter: 2011Q1

REPORT INFORMATION
  Report Type: 
  Country: None (occurrence: None)
  Receive Date: 20110204
  Receipt Date: 20110131
  Transmission Date: 20110831
  Serious: Yes (Death, Other)
  Sender: FDA-Public Use
  Company Number: DE-CUBIST-2010S1001035

PATIENT
  Age: 79 Year
  Sex: Male
  Weight: 95.3 kg

DRUGS (1)
  1. CUBICIN [Suspect]
     Indication: DIABETIC FOOT
     Route: 042
     Dates: start: 20100407, end: 20100416

REACTIONS (3)
  - DISEASE PROGRESSION [None]
  - MULTI-ORGAN FAILURE [None]
  - DRUG INEFFECTIVE [None]
